FAERS Safety Report 23100983 (Version 1)
Quarter: 2023Q4

REPORT INFORMATION
  Report Type: Spontaneous
  Country: CN (occurrence: CN)
  Receive Date: 20231024
  Receipt Date: 20231024
  Transmission Date: 20240110
  Serious: Yes (Other)
  Sender: FDA-Public Use
  Company Number: CN-009507513-2310CHN009890

PATIENT
  Age: 61 Year
  Sex: Male
  Weight: 53 kg

DRUGS (5)
  1. LAGEVRIO [Suspect]
     Active Substance: MOLNUPIRAVIR
     Indication: Symptomatic treatment
     Dosage: 0.8 G, BID
     Route: 048
     Dates: start: 20230909, end: 20230909
  2. LAGEVRIO [Suspect]
     Active Substance: MOLNUPIRAVIR
     Indication: COVID-19
  3. CYCLOSPORINE [Concomitant]
     Active Substance: CYCLOSPORINE
     Dosage: UNK
     Dates: start: 2023
  4. VALGANCICLOVIR HYDROCHLORIDE [Concomitant]
     Active Substance: VALGANCICLOVIR HYDROCHLORIDE
     Dosage: 0.45 GRAM, QD
     Dates: start: 20230907, end: 20230909
  5. VALGANCICLOVIR HYDROCHLORIDE [Concomitant]
     Active Substance: VALGANCICLOVIR HYDROCHLORIDE
     Dosage: 0.9 GRAM, QD
     Dates: start: 20230909, end: 20230921

REACTIONS (4)
  - Renal impairment [Recovered/Resolved]
  - Toxicity to various agents [Recovered/Resolved]
  - Urine output decreased [Recovering/Resolving]
  - Immunosuppressant drug level increased [Recovered/Resolved]

NARRATIVE: CASE EVENT DATE: 20230909
